FAERS Safety Report 9304060 (Version 1)
Quarter: 2013Q1

REPORT INFORMATION
  Report Type: Spontaneous
  Country: FR (occurrence: None)
  Receive Date: 20130125
  Receipt Date: 20130125
  Transmission Date: 20140127
  Serious: Yes (Other)
  Sender: FDA-Public Use
  Company Number: 219906

PATIENT
  Age: 60 Year
  Sex: Male

DRUGS (4)
  1. INNOHEP (TINZAPARIN SODIUM) [Suspect]
     Indication: DEEP VEIN THROMBOSIS
     Dosage: CURATIVE DOSAGE, SUBCUTANEOUS
     Route: 058
  2. INNOHEP (TINZAPARIN SODIUM) [Suspect]
     Indication: PHLEBITIS
     Route: 058
     Dates: start: 201206
  3. INNOHEP (TINZAPARIN SODIUM) [Suspect]
     Indication: DISEASE RECURRENCE
     Route: 058
     Dates: start: 201206
  4. INNOHEP (TINZAPARIN SODIUM) [Suspect]
     Indication: PROPHYLAXIS
     Route: 058
     Dates: start: 201206

REACTIONS (5)
  - Incorrect dose administered [None]
  - Off label use [None]
  - Vena cava thrombosis [None]
  - Recurrent cancer [None]
  - Disease recurrence [None]
